FAERS Safety Report 6070502-3 (Version None)
Quarter: 2009Q1

REPORT INFORMATION
  Report Type: 
  Country: None (occurrence: None)
  Receive Date: 20090209
  Receipt Date: 20090203
  Transmission Date: 20090719
  Serious: Yes (Other)
  Sender: FDA-Public Use
  Company Number: CA-ASTRAZENECA-2009UW03438

PATIENT
  Age: 66 Year
  Sex: Female
  Weight: 68 kg

DRUGS (12)
  1. CRESTOR [Suspect]
     Route: 048
     Dates: start: 20081017, end: 20081212
  2. PROPAFENONE HCL [Concomitant]
     Indication: ATRIAL FIBRILLATION
  3. NOVO-ATENOLOL [Concomitant]
     Indication: HYPERTENSION
  4. CALCIUM WITH MAGNESIUM [Concomitant]
  5. COENZYME Q10 [Concomitant]
  6. CELADRIN [Concomitant]
     Indication: ARTHROPATHY
  7. LECITHIN [Concomitant]
  8. LUMIGAN [Concomitant]
     Indication: GLAUCOMA
  9. EVENING PRIMROSE [Concomitant]
  10. SALMON AND FISH OIL [Concomitant]
  11. COD LIVER OIL [Concomitant]
  12. ASPIRIN [Concomitant]

REACTIONS (5)
  - ABDOMINAL DISCOMFORT [None]
  - BACK PAIN [None]
  - DIARRHOEA [None]
  - HAEMORRHAGE [None]
  - RASH [None]
